FAERS Safety Report 19936936 (Version 2)
Quarter: 2022Q1

REPORT INFORMATION
  Report Type: Report from Study
  Country: US (occurrence: US)
  Receive Date: 20211009
  Receipt Date: 20220312
  Transmission Date: 20220423
  Serious: Yes (Hospitalization, Other)
  Sender: FDA-Public Use
  Company Number: US-NOVARTISPH-NVSC2021US228513

PATIENT
  Sex: Male

DRUGS (1)
  1. ENTRESTO [Suspect]
     Active Substance: SACUBITRIL\VALSARTAN
     Indication: Product used for unknown indication
     Dosage: UNK UNK, UNKNOWN
     Route: 065
     Dates: start: 2020

REACTIONS (10)
  - COVID-19 [Unknown]
  - Throat irritation [Not Recovered/Not Resolved]
  - Neoplasm malignant [Unknown]
  - Arrhythmia [Unknown]
  - Pulmonary thrombosis [Unknown]
  - Coma [Unknown]
  - Palpitations [Unknown]
  - Panic attack [Unknown]
  - Extrasystoles [Unknown]
  - Throat clearing [Unknown]

NARRATIVE: CASE EVENT DATE: 20210101
